FAERS Safety Report 18330496 (Version 11)
Quarter: 2021Q2

REPORT INFORMATION
  Report Type: Report from Study
  Country: US (occurrence: US)
  Receive Date: 20200930
  Receipt Date: 20210623
  Transmission Date: 20210717
  Serious: Yes (Hospitalization)
  Sender: FDA-Public Use
  Company Number: NVSC2020US262806

PATIENT
  Age: 50 Year
  Sex: Female
  Weight: 90.2 kg

DRUGS (11)
  1. CISPLATIN. [Suspect]
     Active Substance: CISPLATIN
     Indication: NON-HODGKIN^S LYMPHOMA
     Dosage: 204 MG, ONCE/SINGLE
     Route: 042
     Dates: start: 20200825
  2. CYCLOPHOSPHAMIDE. [Concomitant]
     Active Substance: CYCLOPHOSPHAMIDE
     Dosage: 500 MG, ONCE/SINGLE
     Route: 065
     Dates: start: 20200918, end: 20200918
  3. RITUXIMAB. [Suspect]
     Active Substance: RITUXIMAB
     Indication: NON-HODGKIN^S LYMPHOMA
     Dosage: 800 MG, ONCE/SINGLE
     Route: 042
     Dates: start: 20200824
  4. KYMRIAH [Suspect]
     Active Substance: TISAGENLECLEUCEL
     Indication: NON-HODGKIN^S LYMPHOMA
     Dosage: 3.3X10E8 CELLS
     Route: 042
     Dates: start: 20200921
  5. PENTAMIDINE [Concomitant]
     Active Substance: PENTAMIDINE
     Indication: NON-HODGKIN^S LYMPHOMA
     Dosage: UNK
     Route: 065
     Dates: start: 20200922, end: 20200922
  6. FLUDARABINE [Concomitant]
     Active Substance: FLUDARABINE PHOSPHATE
     Indication: CHEMOTHERAPY
     Dosage: 51.25 MG, ONCE/SINGLE
     Route: 065
     Dates: start: 20200916, end: 20200916
  7. CYCLOPHOSPHAMIDE. [Concomitant]
     Active Substance: CYCLOPHOSPHAMIDE
     Dosage: 500 MG, ONCE/SINGLE
     Route: 065
     Dates: start: 20200917, end: 20200917
  8. FLUDARABINE [Concomitant]
     Active Substance: FLUDARABINE PHOSPHATE
     Dosage: 51.25 MG, ONCE/SINGLE
     Route: 065
     Dates: start: 20200917, end: 20200917
  9. FLUDARABINE [Concomitant]
     Active Substance: FLUDARABINE PHOSPHATE
     Dosage: 51.25 MG, ONCE/SINGLE
     Route: 065
     Dates: start: 20200918, end: 20200918
  10. DEXAMETHASONE SODIUM PHOSPHATE. [Suspect]
     Active Substance: DEXAMETHASONE SODIUM PHOSPHATE
     Indication: NON-HODGKIN^S LYMPHOMA
     Dosage: 40 MG, ONCE/SINGLE
     Route: 042
     Dates: start: 20200825
  11. CYCLOPHOSPHAMIDE. [Concomitant]
     Active Substance: CYCLOPHOSPHAMIDE
     Indication: CHEMOTHERAPY
     Dosage: 500 MG, ONCE/SINGLE
     Route: 065
     Dates: start: 20200916, end: 20200916

REACTIONS (1)
  - Febrile neutropenia [Recovered/Resolved]

NARRATIVE: CASE EVENT DATE: 20200924
